FAERS Safety Report 23264874 (Version 1)
Quarter: 2023Q4

REPORT INFORMATION
  Report Type: Spontaneous
  Country: FR (occurrence: FR)
  Receive Date: 20231206
  Receipt Date: 20231206
  Transmission Date: 20240109
  Serious: Yes (Other)
  Sender: FDA-Public Use
  Company Number: FR-ROCHE-3461200

PATIENT
  Sex: Female

DRUGS (2)
  1. BEVACIZUMAB [Suspect]
     Active Substance: BEVACIZUMAB
     Indication: Metastases to central nervous system
     Dosage: 4 CYCLES
     Route: 065
  2. ALECTINIB [Concomitant]
     Active Substance: ALECTINIB
     Indication: Non-small cell lung cancer
     Dosage: 600 MG, 2X/DAY

REACTIONS (3)
  - Colitis ulcerative [Unknown]
  - Enterocolitis haemorrhagic [Unknown]
  - Off label use [Unknown]
